FAERS Safety Report 6397526-0 (Version None)
Quarter: 2009Q4

REPORT INFORMATION
  Report Type: 
  Country: None (occurrence: None)
  Receive Date: 20091012
  Receipt Date: 20091008
  Transmission Date: 20100525
  Serious: Yes (Death, Hospitalization, Other)
  Sender: FDA-Public Use
  Company Number: DE-ABBOTT-09P-062-0579324-00

PATIENT
  Sex: Male
  Weight: 56 kg

DRUGS (12)
  1. KALETRA [Suspect]
     Indication: HIV INFECTION
     Route: 048
  2. TRUVADA [Concomitant]
     Indication: HIV INFECTION
     Route: 048
  3. COTRIM [Concomitant]
     Indication: INFECTION PROPHYLAXIS
  4. DIFLUCAN [Concomitant]
     Indication: EROSIVE OESOPHAGITIS
  5. ULTREON [Concomitant]
     Indication: DRUG USE FOR UNKNOWN INDICATION
  6. MYCOBUTIN [Concomitant]
     Indication: MYCOBACTERIAL INFECTION
  7. DECORTIN [Concomitant]
     Indication: DRUG USE FOR UNKNOWN INDICATION
  8. IDEOS [Concomitant]
     Indication: DRUG USE FOR UNKNOWN INDICATION
  9. PANTOZOL [Concomitant]
     Indication: PROPHYLAXIS AGAINST GASTROINTESTINAL ULCER
     Route: 048
  10. CITALOPRAM HYDROBROMIDE [Concomitant]
     Indication: DRUG USE FOR UNKNOWN INDICATION
  11. FENTANYL PLASTER [Concomitant]
     Indication: PAIN
  12. AMPHOTERICIN B [Concomitant]
     Indication: FUNGAL INFECTION

REACTIONS (28)
  - ASCITES [None]
  - ATYPICAL MYCOBACTERIAL INFECTION [None]
  - BRAIN CONTUSION [None]
  - CACHEXIA [None]
  - CONDITION AGGRAVATED [None]
  - DEAFNESS [None]
  - DIARRHOEA [None]
  - DRY SKIN [None]
  - ELECTROLYTE IMBALANCE [None]
  - EROSIVE OESOPHAGITIS [None]
  - FALL [None]
  - HIV INFECTION [None]
  - HYPOALBUMINAEMIA [None]
  - HYPONATRAEMIA [None]
  - KAPOSI'S SARCOMA [None]
  - LEUKOPLAKIA ORAL [None]
  - MYCOBACTERIUM AVIUM COMPLEX INFECTION [None]
  - NAUSEA [None]
  - NO THERAPEUTIC RESPONSE [None]
  - NON-HODGKIN'S LYMPHOMA [None]
  - PAIN [None]
  - PARAESTHESIA [None]
  - SEPSIS [None]
  - STOMATITIS [None]
  - THROMBOCYTOPENIA [None]
  - TINNITUS [None]
  - VOMITING [None]
  - WEIGHT DECREASED [None]
